FAERS Safety Report 13577138 (Version 1)
Quarter: 2017Q2

REPORT INFORMATION
  Report Type: Spontaneous
  Country: FR (occurrence: FR)
  Receive Date: 20170524
  Receipt Date: 20170524
  Transmission Date: 20170830
  Serious: Yes (Hospitalization)
  Sender: FDA-Public Use
  Company Number: FR-PFIZER INC-2017223510

PATIENT
  Age: 81 Year
  Sex: Female

DRUGS (20)
  1. PARACETAMOL [Concomitant]
     Active Substance: ACETAMINOPHEN
     Dosage: 1 G, DAILY
     Dates: start: 20170304, end: 20170304
  2. NEBCINE [Suspect]
     Active Substance: TOBRAMYCIN
     Dosage: 75 MG, DAILY
     Route: 042
     Dates: start: 20170214
  3. ZECLAR [Suspect]
     Active Substance: CLARITHROMYCIN
     Indication: MYCOBACTERIUM CHELONAE INFECTION
     Dosage: 500 MG, 2X/DAY
     Dates: start: 20170207, end: 20170218
  4. PARACETAMOL [Concomitant]
     Active Substance: ACETAMINOPHEN
     Dosage: 1 G, DAILY
     Dates: start: 20170218, end: 20170218
  5. PARACETAMOL [Concomitant]
     Active Substance: ACETAMINOPHEN
     Dosage: 1 G, DAILY
     Dates: start: 20170222, end: 20170222
  6. PARACETAMOL [Concomitant]
     Active Substance: ACETAMINOPHEN
     Dosage: 1 G, DAILY
     Dates: start: 20170226, end: 20170301
  7. ENTECAVIR. [Concomitant]
     Active Substance: ENTECAVIR
     Dosage: UNK
     Dates: start: 20170228
  8. OROCAL /00944201/ [Concomitant]
     Active Substance: CALCIUM CARBONATE\CHOLECALCIFEROL
     Dosage: UNK
  9. TYGACIL [Suspect]
     Active Substance: TIGECYCLINE
     Indication: MYCOBACTERIUM CHELONAE INFECTION
     Dosage: 100 MG, DAILY
     Route: 042
     Dates: start: 20170207, end: 20170315
  10. CORTANCYL [Concomitant]
     Active Substance: PREDNISONE
     Dosage: 6 MG, DAILY
  11. METHOTREXATE. [Concomitant]
     Active Substance: METHOTREXATE
     Dosage: 10 MG, WEEKLY
  12. PARACETAMOL [Concomitant]
     Active Substance: ACETAMINOPHEN
     Dosage: 1 G, DAILY
     Dates: start: 20170214, end: 20170215
  13. PARACETAMOL [Concomitant]
     Active Substance: ACETAMINOPHEN
     Dosage: 1 G, DAILY
     Dates: start: 20170318, end: 20170318
  14. ZECLAR [Suspect]
     Active Substance: CLARITHROMYCIN
     Dosage: 500 MG, 2X/DAY
     Dates: start: 20170305, end: 20170315
  15. METHOTREXATE. [Concomitant]
     Active Substance: METHOTREXATE
     Dosage: 7.5 MG, WEEKLY
     Dates: start: 20170214, end: 20170318
  16. PARACETAMOL [Concomitant]
     Active Substance: ACETAMINOPHEN
     Dosage: 2 G, DAILY
     Dates: start: 20170303, end: 20170303
  17. NEBCINE [Suspect]
     Active Substance: TOBRAMYCIN
     Indication: MYCOBACTERIUM CHELONAE INFECTION
     Dosage: 100 MG, DAILY
     Route: 042
     Dates: start: 20170207
  18. NEBCINE [Suspect]
     Active Substance: TOBRAMYCIN
     Dosage: 90 MG, DAILY
     Route: 042
     Dates: start: 20170217, end: 20170228
  19. NEBCINE [Suspect]
     Active Substance: TOBRAMYCIN
     Dosage: 75 MG, DAILY
     Route: 042
     Dates: start: 20170309, end: 20170314
  20. PARACETAMOL [Concomitant]
     Active Substance: ACETAMINOPHEN
     Dosage: 1 G, DAILY
     Dates: start: 20170310, end: 20170313

REACTIONS (1)
  - Hepatitis cholestatic [Recovering/Resolving]

NARRATIVE: CASE EVENT DATE: 20170313
